FAERS Safety Report 9311031 (Version 1)
Quarter: 2013Q2

REPORT INFORMATION
  Report Type: Report from Study
  Country: CA (occurrence: CA)
  Receive Date: 20130528
  Receipt Date: 20130528
  Transmission Date: 20140414
  Serious: Yes (Other)
  Sender: FDA-Public Use
  Company Number: CA-JNJFOC-20130515708

PATIENT
  Sex: Male

DRUGS (5)
  1. REMICADE [Suspect]
     Indication: CROHN^S DISEASE
     Route: 042
     Dates: start: 20120120
  2. REMICADE [Suspect]
     Indication: CROHN^S DISEASE
     Dosage: EARLY INFUSION: SCHEDULED FOR 27-MAY-2013 BUT RECEIVED ON 21-MAY-2013
     Route: 042
     Dates: start: 20130521
  3. FLAGYL [Concomitant]
     Route: 048
  4. CIPRO [Concomitant]
     Route: 048
     Dates: start: 20110608
  5. MTX [Concomitant]
     Route: 048

REACTIONS (1)
  - Intestinal stenosis [Unknown]
